FAERS Safety Report 8024390-6 (Version None)
Quarter: 2012Q1

REPORT INFORMATION
  Report Type: 
  Country: None (occurrence: None)
  Receive Date: 20120105
  Receipt Date: 20120105
  Transmission Date: 20120608
  Serious: Yes (Life-Threatening, Hospitalization, Disabling, Other)
  Sender: FDA-Public Use
  Company Number: None

PATIENT
  Age: 76 Year
  Sex: Male
  Weight: 71.214 kg

DRUGS (2)
  1. METOPROLOL SUCCINATE [Concomitant]
     Route: 048
  2. WARFARIN SODIUM [Suspect]
     Indication: ATRIAL FIBRILLATION
     Dosage: 10MG
     Route: 048
     Dates: start: 20111203, end: 20111231

REACTIONS (6)
  - HEADACHE [None]
  - ABDOMINAL PAIN [None]
  - DYSPNOEA [None]
  - ASTHENIA [None]
  - DELIRIUM [None]
  - FATIGUE [None]
